FAERS Safety Report 9647407 (Version 3)
Quarter: 2013Q4

REPORT INFORMATION
  Report Type: Report from Study
  Country: MX (occurrence: MX)
  Receive Date: 20131028
  Receipt Date: 20131121
  Transmission Date: 20140711
  Serious: Yes (Hospitalization, Disabling)
  Sender: FDA-Public Use
  Company Number: MX-ROCHE-1253870

PATIENT
  Age: 60 Year
  Sex: Female

DRUGS (4)
  1. XELODA [Suspect]
     Indication: BREAST CANCER METASTATIC
     Dosage: 3-0-3 DURING 14 DAYS FOLLOWED BY A 7 DAYS REST PERIOD.
     Route: 048
     Dates: start: 2010, end: 2010
  2. XELODA [Suspect]
     Route: 048
     Dates: start: 201212, end: 20130711
  3. HERCEPTIN [Suspect]
     Indication: BREAST CANCER
     Route: 042
     Dates: start: 2010, end: 2010
  4. HERCEPTIN [Suspect]
     Route: 042
     Dates: start: 201212, end: 20131016

REACTIONS (14)
  - Thrombosis [Recovered/Resolved]
  - Ascites [Not Recovered/Not Resolved]
  - Lung infiltration [Not Recovered/Not Resolved]
  - Weight decreased [Not Recovered/Not Resolved]
  - Gastrointestinal disorder [Unknown]
  - Impaired healing [Recovered/Resolved]
  - Palmar-plantar erythrodysaesthesia syndrome [Recovering/Resolving]
  - Hypertension [Unknown]
  - Fatigue [Not Recovered/Not Resolved]
  - Decreased appetite [Not Recovered/Not Resolved]
  - Nausea [Not Recovered/Not Resolved]
  - Cough [Not Recovered/Not Resolved]
  - Dehydration [Recovering/Resolving]
  - Somnolence [Recovered/Resolved]
